FAERS Safety Report 8989937 (Version 4)
Quarter: 2013Q2

REPORT INFORMATION
  Report Type: Spontaneous
  Country: US (occurrence: US)
  Receive Date: 20121228
  Receipt Date: 20130419
  Transmission Date: 20140414
  Serious: Yes (Death, Hospitalization, Disabling, Other)
  Sender: FDA-Public Use
  Company Number: US-GLAXOSMITHKLINE-A1006598A

PATIENT
  Age: 52 Year
  Sex: Female
  Weight: 55.5 kg

DRUGS (23)
  1. FLOLAN [Suspect]
     Indication: PRODUCT USED FOR UNKNOWN INDICATION
     Dosage: 34NGKM CONTINUOUS
     Route: 042
     Dates: start: 19991105
  2. GENTAMICIN [Suspect]
     Indication: STAPHYLOCOCCAL BACTERAEMIA
     Route: 065
     Dates: start: 20121228, end: 20121229
  3. DOBUTAMINE [Suspect]
     Indication: PRODUCT USED FOR UNKNOWN INDICATION
     Route: 042
  4. DESMOPRESSIN [Concomitant]
  5. STEROIDS [Concomitant]
  6. VASOPRESSIN [Concomitant]
     Dates: end: 20130108
  7. DOPAMINE [Concomitant]
  8. OXYGEN [Concomitant]
  9. D5W [Concomitant]
  10. ORAL SUPPLEMENT [Concomitant]
  11. NORMAL SALINE [Concomitant]
  12. ORAL FLUID [Concomitant]
  13. SILDENAFIL [Concomitant]
  14. ACETAMINOPHEN + CODEINE #3 [Concomitant]
  15. BISACODYL [Concomitant]
  16. ESOMEPRAZOLE [Concomitant]
  17. SENNA [Concomitant]
  18. BACITRACIN [Concomitant]
  19. DARBEPOETIN ALFA [Concomitant]
  20. POTASSIUM CHLORIDE [Concomitant]
  21. PREDNISONE [Concomitant]
  22. SIMETHICONE [Concomitant]
  23. HEPARIN [Concomitant]

REACTIONS (70)
  - Bacteraemia [Fatal]
  - Cor pulmonale [Fatal]
  - Pulmonary hypertension [Fatal]
  - Infusion site infection [Unknown]
  - Haemorrhage [Unknown]
  - Ascites [Unknown]
  - Peritoneal haemorrhage [Unknown]
  - Pneumonia [Unknown]
  - Electrocardiogram repolarisation abnormality [Unknown]
  - Myocardial ischaemia [Unknown]
  - Staphylococcal infection [Recovered/Resolved]
  - Staphylococcal bacteraemia [Recovered/Resolved]
  - Device related infection [Unknown]
  - Cardiac failure congestive [Unknown]
  - Renal failure acute [Unknown]
  - Renal tubular necrosis [Unknown]
  - Multi-organ failure [Unknown]
  - Hepatic congestion [Unknown]
  - Right atrial dilatation [Unknown]
  - Condition aggravated [Not Recovered/Not Resolved]
  - Platelet count decreased [Unknown]
  - Blood creatinine increased [Recovering/Resolving]
  - Constipation [Unknown]
  - White blood cell count increased [Unknown]
  - Weight increased [Unknown]
  - Abdominal discomfort [Unknown]
  - Atrial tachycardia [Unknown]
  - Ventricular extrasystoles [Unknown]
  - Supraventricular extrasystoles [Unknown]
  - Discomfort [Unknown]
  - Fatigue [Unknown]
  - Periorbital haemorrhage [Recovering/Resolving]
  - Heart rate irregular [Unknown]
  - Cardiac murmur [Unknown]
  - Heart sounds abnormal [Unknown]
  - Oedema [Unknown]
  - Cachexia [Unknown]
  - Swelling [Unknown]
  - Facial bones fracture [Unknown]
  - Lymphadenopathy [Unknown]
  - Hepatomegaly [Unknown]
  - Cholelithiasis [Unknown]
  - Chest X-ray abnormal [Unknown]
  - Cardiomegaly [Unknown]
  - Nephropathy [Unknown]
  - Atrioventricular block [Unknown]
  - QRS axis abnormal [Unknown]
  - Bundle branch block right [Unknown]
  - Right ventricular hypertrophy [Unknown]
  - Conduction disorder [Unknown]
  - Chromaturia [Unknown]
  - Blood urine present [Unknown]
  - Pyrexia [Unknown]
  - Catheter site discharge [Unknown]
  - Dehydration [Unknown]
  - Fall [Unknown]
  - Head injury [Unknown]
  - Fluid overload [Unknown]
  - Haemoglobin decreased [Unknown]
  - Thrombocytopenia [Unknown]
  - Injury [Unknown]
  - Skin discolouration [Unknown]
  - Ecchymosis [Unknown]
  - Abdominal distension [Unknown]
  - Blood alkaline phosphatase increased [Unknown]
  - Abdominal pain [Unknown]
  - Mental status changes [Unknown]
  - Generalised oedema [Unknown]
  - Diverticulum [Unknown]
  - Pulmonary mass [Unknown]
